FAERS Safety Report 6794250-7 (Version None)
Quarter: 2010Q2

REPORT INFORMATION
  Report Type: 
  Country: None (occurrence: None)
  Receive Date: 20100625
  Receipt Date: 20100615
  Transmission Date: 20101027
  Serious: No
  Sender: FDA-Public Use
  Company Number: US-BIOGENIDEC-2010BI016358

PATIENT
  Age: 69 Year
  Sex: Female

DRUGS (1)
  1. TYSABRI [Suspect]
     Indication: MULTIPLE SCLEROSIS
     Route: 042
     Dates: start: 20090708, end: 20100113

REACTIONS (5)
  - ARTHRITIS [None]
  - ASTHENIA [None]
  - DRUG INEFFECTIVE [None]
  - INTERVERTEBRAL DISC SPACE NARROWING [None]
  - MOOD ALTERED [None]
